FAERS Safety Report 25687872 (Version 1)
Quarter: 2025Q3

REPORT INFORMATION
  Report Type: Report from Study
  Country: EG (occurrence: EG)
  Receive Date: 20250817
  Receipt Date: 20250817
  Transmission Date: 20251020
  Serious: Yes (Hospitalization)
  Sender: BIOGEN
  Company Number: EG-BIOGEN-2025BI01320743

PATIENT
  Sex: Female
  Weight: 67 kg

DRUGS (7)
  1. TYSABRI [Suspect]
     Active Substance: NATALIZUMAB
     Indication: Multiple sclerosis
     Route: 050
     Dates: start: 202305
  2. TRYPTIZOL [Concomitant]
     Active Substance: AMITRIPTYLINE HYDROCHLORIDE
     Indication: Migraine
     Route: 050
  3. Amocerebral Plus [Concomitant]
     Indication: Dizziness
     Route: 050
  4. Gralipentin [Concomitant]
     Indication: Nervous system disorder prophylaxis
     Route: 050
  5. Betolvex [Concomitant]
     Indication: Nervous system disorder prophylaxis
     Route: 050
  6. OMEGA 3 [Concomitant]
     Active Substance: CAPSAICIN
     Indication: Immune enhancement therapy
     Route: 050
  7. ALFACALCIDOL [Concomitant]
     Active Substance: ALFACALCIDOL
     Indication: Immune enhancement therapy
     Route: 050

REACTIONS (1)
  - Multiple sclerosis relapse [Recovered/Resolved]
